FAERS Safety Report 17513657 (Version 1)
Quarter: 2020Q1

REPORT INFORMATION
  Report Type: Spontaneous
  Country: GB (occurrence: GB)
  Receive Date: 20200308
  Receipt Date: 20200308
  Transmission Date: 20200409
  Serious: Yes (Other)
  Sender: FDA-Public Use
  Company Number: GB-TEVA-2020-GB-1195445

PATIENT
  Age: 77 Year
  Sex: Male
  Weight: 76 kg

DRUGS (19)
  1. TRIMETHOPRIM. [Suspect]
     Active Substance: TRIMETHOPRIM
     Dosage: 400 MG
     Route: 048
     Dates: start: 20200113
  2. CLOPIDOGREL [Concomitant]
     Active Substance: CLOPIDOGREL BISULFATE
     Dosage: 1DOSAGE FORMS
     Dates: start: 20191001
  3. DILTIAZEM. [Concomitant]
     Active Substance: DILTIAZEM
     Dosage: 1 DOSAGE FORMS
     Dates: start: 20190508
  4. GLYCERYL TRINITRATE [Concomitant]
     Active Substance: NITROGLYCERIN
     Dosage: PUFF, 1 DOSAGE FORMS
     Dates: start: 20191114
  5. GAVISCON ADVANCE [Concomitant]
     Active Substance: POTASSIUM BICARBONATE\SODIUM ALGINATE
     Dosage: 5ML - 10ML 4 TIMES/DAY
     Dates: start: 20190211
  6. FINASTERIDE. [Concomitant]
     Active Substance: FINASTERIDE
     Dosage: 1 DOSAGE FORMS
     Dates: start: 20190211
  7. FERROUS SULFATE. [Concomitant]
     Active Substance: FERROUS SULFATE
     Dosage: 2 DOSAGE FORMS
     Dates: start: 20190211
  8. ESOMEPRAZOLE. [Concomitant]
     Active Substance: ESOMEPRAZOLE MAGNESIUM
     Dosage: 2 DOSAGE FORMS
     Dates: start: 20190211
  9. ISOSORBIDE MONONITRATE. [Concomitant]
     Active Substance: ISOSORBIDE MONONITRATE
     Dosage: 1 DOSAGE FORMS
     Dates: start: 20190211
  10. RANITIDINE. [Concomitant]
     Active Substance: RANITIDINE
     Dosage: 1 DOSAGE FORMS DAILY; AT NIGHT
     Dates: start: 20190211
  11. NITROFURANTOIN. [Concomitant]
     Active Substance: NITROFURANTOIN
     Dosage: 2 DOSAGE FORMS
     Dates: start: 20200113
  12. RANOLAZINE. [Concomitant]
     Active Substance: RANOLAZINE
     Dosage: 2 DOSAGE FORMS
     Dates: start: 20190211
  13. ATORVASTATIN [Concomitant]
     Active Substance: ATORVASTATIN
     Dosage: 1 DOSAGE FORMS
     Dates: start: 20191114
  14. DOXYCYCLINE. [Concomitant]
     Active Substance: DOXYCYCLINE
     Dosage: 2 DOSAGE FORMS
     Dates: start: 20191206, end: 20191211
  15. LAXIDO [Concomitant]
     Active Substance: POLYETHYLENE GLYCOL 3350\POTASSIUM CHLORIDE\SODIUM BICARBONATE\SODIUM CHLORIDE
     Dosage: 1 SACHET ONCE OR TWICE A DAY
     Dates: start: 20190211
  16. MOMETASONE [Concomitant]
     Active Substance: MOMETASONE
     Dosage: EACH NOSTRIL, 4 DOSAGE FORMS
     Route: 045
     Dates: start: 20191217, end: 20191231
  17. OTOMIZE [Concomitant]
     Active Substance: DEXAMETHASONE\NEOMYCIN SULFATE
     Dosage: APPLY, 3 DOSAGE FORMS
     Dates: start: 20191115, end: 20191213
  18. CARBAMAZEPINE. [Concomitant]
     Active Substance: CARBAMAZEPINE
     Dosage: 1 DOSAGE FORMS DAILY; AT NIGHT
     Dates: start: 20190211
  19. ACETYLSALICYLIC ACID [Concomitant]
     Active Substance: ASPIRIN
     Dosage: 1 DOSAGE FORMS
     Dates: start: 20190211

REACTIONS (1)
  - Dyspnoea [Recovered/Resolved]

NARRATIVE: CASE EVENT DATE: 20200113
